FAERS Safety Report 11118016 (Version 2)
Quarter: 2017Q2

REPORT INFORMATION
  Report Type: Spontaneous
  Country: CH (occurrence: CH)
  Receive Date: 20150518
  Receipt Date: 20170503
  Transmission Date: 20170829
  Serious: Yes (Other)
  Sender: FDA-Public Use
  Company Number: CH-TEVA-562467ISR

PATIENT
  Age: 74 Year
  Sex: Female

DRUGS (1)
  1. PANTOPRAZOLE SODIUM. [Suspect]
     Active Substance: PANTOPRAZOLE SODIUM
     Dosage: DRUG WAS USED SPORADICALLY
     Route: 065
     Dates: start: 201505

REACTIONS (2)
  - Urinary retention [Unknown]
  - Micturition disorder [Unknown]

NARRATIVE: CASE EVENT DATE: 201505
